FAERS Safety Report 12858554 (Version 1)
Quarter: 2016Q4

REPORT INFORMATION
  Report Type: Spontaneous
  Country: CA (occurrence: CA)
  Receive Date: 20161018
  Receipt Date: 20161018
  Transmission Date: 20170207
  Serious: Yes (Other)
  Sender: FDA-Public Use
  Company Number: CA-BAYER-2016-199018

PATIENT
  Age: 22 Year
  Sex: Female
  Weight: 69.84 kg

DRUGS (4)
  1. TRANEXAMIC ACID. [Concomitant]
     Active Substance: TRANEXAMIC ACID
  2. MIRENA [Suspect]
     Active Substance: LEVONORGESTREL
     Dosage: 20 MCG/24HR, CONT
     Route: 015
  3. NAPROXEN. [Concomitant]
     Active Substance: NAPROXEN
  4. CITALOPRAM [Concomitant]
     Active Substance: CITALOPRAM HYDROBROMIDE
     Route: 048

REACTIONS (9)
  - Negative thoughts [Not Recovered/Not Resolved]
  - Impatience [Not Recovered/Not Resolved]
  - Menstruation irregular [Not Recovered/Not Resolved]
  - Dyspareunia [Not Recovered/Not Resolved]
  - Emotional distress [Not Recovered/Not Resolved]
  - CSF white blood cell count increased [Not Recovered/Not Resolved]
  - Menorrhagia [Not Recovered/Not Resolved]
  - Hot flush [Not Recovered/Not Resolved]
  - Aggression [Not Recovered/Not Resolved]
